FAERS Safety Report 9126813 (Version 1)
Quarter: 2013Q1

REPORT INFORMATION
  Report Type: Spontaneous
  Country: US (occurrence: US)
  Receive Date: 20130228
  Receipt Date: 20130228
  Transmission Date: 20140127
  Serious: No
  Sender: FDA-Public Use
  Company Number: US-TARO-2013P1000234

PATIENT
  Age: 31 Year
  Sex: Female

DRUGS (3)
  1. LAMOTRIGINE [Suspect]
     Indication: CONVULSION
     Dates: start: 20121002
  2. LAMOTRIGINE [Suspect]
     Indication: CONVULSION
     Route: 048
     Dates: start: 20121031
  3. ADDERALL [Concomitant]

REACTIONS (1)
  - Drug screen positive [Unknown]
